FAERS Safety Report 11363413 (Version 2)
Quarter: 2015Q3

REPORT INFORMATION
  Report Type: Spontaneous
  Country: US (occurrence: US)
  Receive Date: 20150811
  Receipt Date: 20150910
  Transmission Date: 20151125
  Serious: Yes (Other)
  Sender: FDA-Public Use
  Company Number: US-ASTRAZENECA-2015SE75845

PATIENT
  Sex: Male

DRUGS (1)
  1. PULMICORT FLEXHALER [Suspect]
     Active Substance: BUDESONIDE
     Dosage: 180 UG, 2 PUFFS/ TWO TIMES A DAY
     Route: 055
     Dates: start: 20150801

REACTIONS (2)
  - Interstitial lung disease [Not Recovered/Not Resolved]
  - Product quality issue [Unknown]
